FAERS Safety Report 8961730 (Version 1)
Quarter: 2012Q4

REPORT INFORMATION
  Report Type: 
  Country: GB (occurrence: GB)
  Receive Date: 20121213
  Receipt Date: 20121213
  Transmission Date: 20130627
  Serious: Yes (Hospitalization, Other)
  Sender: FDA-Public Use
  Company Number: GB-PFIZER INC-2004046662

PATIENT
  Age: 73 Year

DRUGS (6)
  1. IBUPROFEN [Suspect]
     Dosage: 400MG NIGHTLY
     Route: 048
     Dates: start: 200406
  2. AMLODIPINE BESILATE [Concomitant]
     Dosage: 5 MG DAILY
     Route: 048
  3. SIMVASTATIN [Concomitant]
     Dosage: 40 MG DAILY
     Route: 048
  4. RAMIPRIL [Concomitant]
     Dosage: 10 MG DAILY
     Route: 048
  5. BISOPROLOL FUMARATE [Concomitant]
     Dosage: 5 MG, FREQUENCY UNSPECIFIED
     Route: 048
  6. FERROUS SULFATE [Concomitant]
     Dosage: 200 MG DAILY
     Route: 048

REACTIONS (3)
  - Upper gastrointestinal haemorrhage [Recovering/Resolving]
  - Anaemia [Recovering/Resolving]
  - Condition aggravated [Recovered/Resolved]
